FAERS Safety Report 11539093 (Version 1)
Quarter: 2015Q3

REPORT INFORMATION
  Report Type: Spontaneous
  Country: US (occurrence: US)
  Receive Date: 20150923
  Receipt Date: 20150923
  Transmission Date: 20151125
  Serious: Yes (Other)
  Sender: FDA-Public Use
  Company Number: US-SUN PHARMACEUTICAL INDUSTRIES LTD-2015US-103422

PATIENT
  Age: 57 Year
  Sex: Male

DRUGS (2)
  1. SIMVASTATIN. [Suspect]
     Active Substance: SIMVASTATIN
     Indication: PRODUCT USED FOR UNKNOWN INDICATION
     Dosage: UNK
     Route: 065
  2. PREDNISONE. [Suspect]
     Active Substance: PREDNISONE
     Indication: DYSPNOEA EXERTIONAL
     Dosage: 40 MG, DAILY
     Route: 065

REACTIONS (3)
  - Organising pneumonia [Not Recovered/Not Resolved]
  - Weight increased [Unknown]
  - Drug intolerance [Unknown]
